FAERS Safety Report 9919058 (Version 1)
Quarter: 2014Q1

REPORT INFORMATION
  Report Type: Spontaneous
  Country: JP (occurrence: JP)
  Receive Date: 20140224
  Receipt Date: 20140224
  Transmission Date: 20141002
  Serious: Yes (Hospitalization)
  Sender: FDA-Public Use
  Company Number: JP-ELI_LILLY_AND_COMPANY-JP201402005465

PATIENT
  Age: 88 Year
  Sex: Female

DRUGS (1)
  1. FORTEO [Suspect]
     Indication: PRODUCT USED FOR UNKNOWN INDICATION
     Dosage: UNK
     Route: 058
     Dates: start: 201312

REACTIONS (7)
  - Eye disorder [Unknown]
  - Depressed level of consciousness [Unknown]
  - Dizziness postural [Unknown]
  - Loss of consciousness [Unknown]
  - Neurosis [Unknown]
  - Panic disorder [Unknown]
  - Dyspnoea [Unknown]
